FAERS Safety Report 4405254-3 (Version None)
Quarter: 2004Q3

REPORT INFORMATION
  Report Type: 
  Country: None (occurrence: None)
  Receive Date: 20040723
  Receipt Date: 20040106
  Transmission Date: 20050211
  Serious: Yes (Hospitalization, Other)
  Sender: FDA-Public Use
  Company Number: FR-BRISTOL-MYERS SQUIBB COMPANY-12470167

PATIENT
  Age: 62 Year
  Sex: Female

DRUGS (4)
  1. COAPROVEL [Suspect]
     Indication: HYPERTENSION
     Dosage: STUDY MEDICATION WAS DISCONTINUED
     Route: 048
     Dates: start: 20031118, end: 20031224
  2. RHINADVIL [Concomitant]
  3. TAHOR [Concomitant]
     Dates: start: 20000904
  4. APRANAX [Concomitant]

REACTIONS (2)
  - GLOMERULONEPHRITIS [None]
  - GLOMERULONEPHRITIS ACUTE [None]
